FAERS Safety Report 10416358 (Version 1)
Quarter: 2014Q3

REPORT INFORMATION
  Report Type: Spontaneous
  Country: US (occurrence: None)
  Receive Date: 20140827
  Receipt Date: 20140827
  Transmission Date: 20150326
  Serious: Yes (Other)
  Sender: FDA-Public Use
  Company Number: None

PATIENT
  Age: 45 Year
  Sex: Female
  Weight: 70.31 kg

DRUGS (2)
  1. IBUPROFEN 200 MG [Suspect]
     Active Substance: IBUPROFEN
     Indication: TENDONITIS
     Dosage: 1 TABLET ONCE DAILY, TAKEN BY MOUTH?
     Route: 048
  2. IBUPROFEN 200 MG [Suspect]
     Active Substance: IBUPROFEN
     Indication: PLANTAR FASCIITIS
     Dosage: 1 TABLET ONCE DAILY, TAKEN BY MOUTH?
     Route: 048

REACTIONS (4)
  - Gastrooesophageal reflux disease [None]
  - Weight decreased [None]
  - Upper-airway cough syndrome [None]
  - Sinusitis [None]
